FAERS Safety Report 5235988-2 (Version None)
Quarter: 2007Q1

REPORT INFORMATION
  Report Type: 
  Country: None (occurrence: None)
  Receive Date: 20061208
  Receipt Date: 20060410
  Transmission Date: 20070707
  Serious: Yes (Other)
  Sender: FDA-Public Use
  Company Number: 2006UW06285

PATIENT
  Age: 66 Year
  Sex: Male
  Weight: 122.46 kg

DRUGS (9)
  1. CRESTOR [Suspect]
     Indication: BLOOD CHOLESTEROL INCREASED
     Dosage: 10 MG DAILY PO
     Route: 048
     Dates: start: 20051001, end: 20060405
  2. METOPROLOL SUCCINATE [Concomitant]
  3. ISOSORBIDE [Concomitant]
  4. ENALAPRIL MALEATE [Concomitant]
  5. WARFARIN SODIUM [Concomitant]
  6. ASPIRIN [Concomitant]
  7. ZOLOFT [Concomitant]
  8. PERCOCET [Concomitant]
  9. FENTANYL [Concomitant]

REACTIONS (5)
  - ASTHENIA [None]
  - FATIGUE [None]
  - GAIT DISTURBANCE [None]
  - MYALGIA [None]
  - TREMOR [None]
